FAERS Safety Report 10487322 (Version 1)
Quarter: 2014Q4

REPORT INFORMATION
  Report Type: Spontaneous
  Country: GB (occurrence: GB)
  Receive Date: 20141001
  Receipt Date: 20141001
  Transmission Date: 20150528
  Serious: Yes (Disabling)
  Sender: FDA-Public Use
  Company Number: PHHY2014GB124672

PATIENT
  Age: 66 Year
  Sex: Male

DRUGS (16)
  1. LATANOPROST. [Concomitant]
     Active Substance: LATANOPROST
     Dosage: 50 MG/ML, APPLIED AT NIGHT IN BOTH EYES
  2. ISOSORBIDE MONONITRATE. [Concomitant]
     Active Substance: ISOSORBIDE MONONITRATE
  3. COCODAMOL [Concomitant]
     Active Substance: ACETAMINOPHEN\CODEINE PHOSPHATE
     Dosage: 1-2 CAPSULES UP TO 4 TIMES DAILY
  4. PLAVIX [Concomitant]
     Active Substance: CLOPIDOGREL BISULFATE
  5. HUMALOG MIX25 [Concomitant]
     Dosage: 100 U/ML, AS DIRECTED
  6. POLYTAR PLUS [Concomitant]
     Dosage: UNK
  7. BIMATOPROST. [Concomitant]
     Active Substance: BIMATOPROST
     Dosage: 1 DROP INTO THE AFFECTED EYE(S) ONCE IN THE EVENING
  8. RANITIDINE [Concomitant]
     Active Substance: RANITIDINE\RANITIDINE HYDROCHLORIDE
  9. DOXAZOSIN [Suspect]
     Active Substance: DOXAZOSIN\DOXAZOSIN MESYLATE
     Route: 048
  10. DILZEM [Concomitant]
     Active Substance: DILTIAZEM
  11. GAVISCON [Concomitant]
     Active Substance: ALUMINUM HYDROXIDE\MAGNESIUM CARBONATE
     Dosage: 1-2 AS REQUIRED
  12. CANDESARTAN [Concomitant]
     Active Substance: CANDESARTAN
  13. METFORMIN [Concomitant]
     Active Substance: METFORMIN HYDROCHLORIDE
  14. ROSUVASTATIN [Concomitant]
     Active Substance: ROSUVASTATIN
  15. BISOPROLOL [Concomitant]
     Active Substance: BISOPROLOL
  16. AMITRIPTYLINE [Concomitant]
     Active Substance: AMITRIPTYLINE
     Dosage: 25 MG, QD (NIGHT)

REACTIONS (4)
  - Oesophagitis [Recovering/Resolving]
  - Sputum discoloured [Recovering/Resolving]
  - Lung disorder [Recovering/Resolving]
  - Increased bronchial secretion [Recovering/Resolving]
